FAERS Safety Report 6008169-2 (Version None)
Quarter: 2008Q4

REPORT INFORMATION
  Report Type: 
  Country: None (occurrence: None)
  Receive Date: 20081217
  Receipt Date: 20080730
  Transmission Date: 20090506
  Serious: No
  Sender: FDA-Public Use
  Company Number: US-ASTRAZENECA-2008UW14854

PATIENT
  Age: 77 Year
  Sex: Female
  Weight: 77.1 kg

DRUGS (6)
  1. CRESTOR [Suspect]
     Indication: BLOOD CHOLESTEROL
     Route: 048
  2. CRESTOR [Suspect]
     Route: 048
  3. ATENOLOL HYDROCHLOROTHIAZIDE [Concomitant]
  4. POTASSIUM CHLORIDE [Concomitant]
  5. HYDROCODONE BITARTRATE [Concomitant]
  6. ASPIRIN [Concomitant]

REACTIONS (2)
  - MYALGIA [None]
  - OSTEOARTHRITIS [None]
